FAERS Safety Report 24639771 (Version 1)
Quarter: 2024Q4

REPORT INFORMATION
  Report Type: Spontaneous
  Country: US (occurrence: US)
  Receive Date: 20241120
  Receipt Date: 20241120
  Transmission Date: 20250115
  Serious: Yes (Other)
  Sender: AUROBINDO
  Company Number: US-AUROBINDO-AUR-APL-2024-055510

PATIENT
  Age: 46 Year
  Sex: Female

DRUGS (4)
  1. FAMOTIDINE [Suspect]
     Active Substance: FAMOTIDINE
     Indication: Idiopathic angioedema
     Dosage: UNK
     Route: 048
  2. PREDNISONE [Suspect]
     Active Substance: PREDNISONE
     Indication: Idiopathic angioedema
     Dosage: 30-40 MG/DAY
     Route: 048
  3. MONTELUKAST [Suspect]
     Active Substance: MONTELUKAST
     Indication: Idiopathic angioedema
     Dosage: UNK
     Route: 048
  4. AMLODIPINE [Concomitant]
     Active Substance: AMLODIPINE BESYLATE
     Indication: Product used for unknown indication
     Dosage: UNK
     Route: 065

REACTIONS (1)
  - Drug ineffective [Unknown]
